FAERS Safety Report 24140558 (Version 2)
Quarter: 2024Q3

REPORT INFORMATION
  Report Type: Spontaneous
  Country: GB (occurrence: GB)
  Receive Date: 20240726
  Receipt Date: 20240829
  Transmission Date: 20241016
  Serious: Yes (Hospitalization, Other)
  Sender: Vantive US Healthcare
  Company Number: GB-VANTIVE-2024VAN018505

PATIENT
  Sex: Male

DRUGS (2)
  1. DEXTROSE\LACTIC ACID\MAGNESIUM CL\POTASSIUM CL\SODIUM BICARBONATE\SODI [Suspect]
     Active Substance: DEXTROSE\LACTIC ACID\MAGNESIUM CL\POTASSIUM CL\SODIUM BICARBONATE\SODIUM CL
     Route: 065
  2. MAGNESIUM CHLORIDE\SODIUM BICARBONATE\SODIUM CHLORIDE [Suspect]
     Active Substance: MAGNESIUM CHLORIDE\SODIUM BICARBONATE\SODIUM CHLORIDE
     Route: 065

REACTIONS (15)
  - Pulmonary congestion [Unknown]
  - Pneumonia [Unknown]
  - Atrial fibrillation [Unknown]
  - Ventricular tachycardia [Unknown]
  - Hypervolaemia [Unknown]
  - Tachyarrhythmia [Unknown]
  - Left ventricular dysfunction [Unknown]
  - Ventricular extrasystoles [Unknown]
  - Respiratory disorder [Unknown]
  - Arrhythmia [Recovered/Resolved]
  - Ventricular tachycardia [Unknown]
  - Renal impairment [Unknown]
  - Condition aggravated [Unknown]
  - Creatinine renal clearance increased [Unknown]
  - Electrolyte imbalance [Unknown]
